FAERS Safety Report 5797682-9 (Version None)
Quarter: 2008Q2

REPORT INFORMATION
  Report Type: 
  Country: None (occurrence: None)
  Receive Date: 20080618
  Receipt Date: 20070520
  Transmission Date: 20081010
  Serious: Yes (Other)
  Sender: FDA-Public Use
  Company Number: 200713745US

PATIENT
  Age: 74 Year
  Sex: Female

DRUGS (6)
  1. LANTUS [Suspect]
     Indication: DIABETES MELLITUS
     Dosage: 65 U
     Dates: start: 20070101
  2. OPTICLIK [Suspect]
     Indication: DIABETES MELLITUS
     Dates: start: 20070516
  3. HUMALOG [Concomitant]
  4. LEVOTHYROXINE SODIUM (LEVOTHYROID) [Concomitant]
  5. LOVASTATIN HYDROCHLORIDE, TRIAMTERENE (TRIAMTERENE/HCTZ) [Concomitant]
  6. FUROSEMIDE [Concomitant]

REACTIONS (1)
  - HYPERGLYCAEMIA [None]
